FAERS Safety Report 25298718 (Version 4)
Quarter: 2025Q2

REPORT INFORMATION
  Report Type: Spontaneous
  Country: CH (occurrence: CH)
  Receive Date: 20250512
  Receipt Date: 20250530
  Transmission Date: 20250717
  Serious: Yes (Hospitalization, Disabling)
  Sender: ROCHE
  Company Number: CH-002147023-NVSC2025CH057562

PATIENT
  Age: 84 Year
  Sex: Female

DRUGS (3)
  1. LUCENTIS [Suspect]
     Active Substance: RANIBIZUMAB
     Indication: Age-related macular degeneration
     Route: 050
     Dates: start: 20250311, end: 20250313
  2. LUCENTIS [Suspect]
     Active Substance: RANIBIZUMAB
     Route: 050
     Dates: start: 20250331
  3. LUCENTIS [Suspect]
     Active Substance: RANIBIZUMAB
     Route: 050

REACTIONS (3)
  - Endophthalmitis [Recovered/Resolved with Sequelae]
  - Syncope [Unknown]
  - Blood pressure fluctuation [Not Recovered/Not Resolved]

NARRATIVE: CASE EVENT DATE: 20250313
